FAERS Safety Report 5694340-6 (Version None)
Quarter: 2008Q2

REPORT INFORMATION
  Report Type: 
  Country: None (occurrence: None)
  Receive Date: 20080404
  Receipt Date: 20080328
  Transmission Date: 20081010
  Serious: Yes (Hospitalization, Other)
  Sender: FDA-Public Use
  Company Number: KR-BAYER-200815784GPV

PATIENT
  Age: 30 Year
  Sex: Male
  Weight: 75 kg

DRUGS (1)
  1. ULTRAVIST 300 [Suspect]
     Indication: COMPUTERISED TOMOGRAM
     Dosage: TOTAL DAILY DOSE: 100 ML
     Route: 040
     Dates: start: 20080326, end: 20080326

REACTIONS (2)
  - BLOOD PRESSURE INCREASED [None]
  - URTICARIA [None]
